FAERS Safety Report 12850506 (Version 2)
Quarter: 2016Q4

REPORT INFORMATION
  Report Type: Report from Study
  Country: None (occurrence: PA)
  Receive Date: 20161014
  Receipt Date: 20161019
  Transmission Date: 20170207
  Serious: Yes (Death, Hospitalization, Other)
  Sender: FDA-Public Use
  Company Number: PA-ABBVIE-16P-125-1751414-00

PATIENT
  Age: 71 Year
  Sex: Male

DRUGS (1)
  1. ZEMPLAR [Suspect]
     Active Substance: PARICALCITOL
     Indication: HYPERPARATHYROIDISM SECONDARY
     Dosage: THE ZEMPLAR THERAPY IS ADMINISTERED DURING HEMODIALYSIS
     Route: 042
     Dates: start: 20111110

REACTIONS (4)
  - Presyncope [Not Recovered/Not Resolved]
  - Cardiac procedure complication [Fatal]
  - Cardiac disorder [Unknown]
  - Asthenia [Not Recovered/Not Resolved]

NARRATIVE: CASE EVENT DATE: 20161007
